FAERS Safety Report 8966195 (Version 2)
Quarter: 2013Q4

REPORT INFORMATION
  Report Type: Spontaneous
  Country: JP (occurrence: JP)
  Receive Date: 20121217
  Receipt Date: 20131105
  Transmission Date: 20140711
  Serious: Yes (Life-Threatening, Hospitalization)
  Sender: FDA-Public Use
  Company Number: JP-PFIZER INC-2012295531

PATIENT
  Age: 62 Year
  Sex: Female
  Weight: 48.2 kg

DRUGS (17)
  1. INLYTA [Suspect]
     Indication: METASTATIC RENAL CELL CARCINOMA
     Dosage: 5 MG, 2X/DAY
     Route: 048
     Dates: start: 20121022, end: 20121105
  2. INLYTA [Suspect]
     Dosage: 7 MG, 2X/DAY
     Route: 048
     Dates: start: 20121106, end: 20121114
  3. CALONAL [Suspect]
     Indication: CANCER PAIN
     Dosage: 40 MG, 4X/DAY
     Route: 048
     Dates: start: 20120820
  4. DECADRON [Suspect]
     Indication: METASTASIS
     Dosage: 4 MG, 2X/DAY
     Route: 048
     Dates: start: 20120725
  5. OXYCONTIN [Concomitant]
     Indication: CANCER PAIN
     Dosage: 15 MG, 2X/DAY
     Route: 048
     Dates: start: 20120725
  6. ARGAMATE [Concomitant]
     Indication: HYPERKALAEMIA
     Dosage: 25 G, 2X/DAY
     Route: 048
     Dates: start: 20120803
  7. GASTER D [Concomitant]
     Indication: GASTRITIS
     Dosage: 10 MG, 2X/DAY
     Route: 048
     Dates: start: 20120807
  8. TAKEPRON OD [Concomitant]
     Indication: GASTRITIS
     Dosage: 15 MG, 1X/DAY
     Route: 048
     Dates: start: 20121023
  9. GASMOTIN [Concomitant]
     Indication: GASTRITIS
     Dosage: 5 MG, 3X/DAY
     Route: 048
     Dates: start: 20121023
  10. MYSLEE [Concomitant]
     Indication: INSOMNIA
     Dosage: 5 MG, 1X/DAY
     Route: 048
     Dates: start: 20121029
  11. CALCIUM LACTATE [Concomitant]
     Indication: HYPOCALCAEMIA
     Dosage: 1 G, 2X/DAY
     Route: 048
     Dates: start: 20120801
  12. LYRICA [Concomitant]
     Indication: NEURALGIA
     Dosage: 75 MG, 2X/DAY
     Route: 048
     Dates: start: 20120705
  13. MAG-LAX [Concomitant]
     Indication: CONSTIPATION
     Dosage: 500 MG, 3X/DAY
     Route: 048
     Dates: start: 20120721
  14. PURSENNID [Concomitant]
     Indication: CONSTIPATION
     Dosage: 24 MG, 1X/DAY
     Route: 048
     Dates: start: 20120721
  15. RANMARK [Concomitant]
     Indication: METASTASES TO BONE
     Dosage: 120 MG, 1X/DAY
     Route: 042
     Dates: start: 20121107, end: 20121107
  16. MEDICON [Concomitant]
     Indication: COUGH
     Dosage: 15 MG, 3X/DAY
     Route: 048
     Dates: start: 20121103
  17. OXINORM (OXYCODONE HYDROCHLORIDE) [Concomitant]
     Indication: CANCER PAIN
     Dosage: 2.5 MG, AS NEEDED
     Route: 048
     Dates: start: 20120720

REACTIONS (2)
  - Peritonitis [Recovered/Resolved with Sequelae]
  - Gastric perforation [Recovered/Resolved with Sequelae]
